FAERS Safety Report 7981319-4 (Version None)
Quarter: 2011Q4

REPORT INFORMATION
  Report Type: 
  Country: None (occurrence: None)
  Receive Date: 20111212
  Receipt Date: 20111129
  Transmission Date: 20120403
  Serious: Yes (Hospitalization)
  Sender: FDA-Public Use
  Company Number: 1125455

PATIENT
  Age: 45 Year
  Sex: Male

DRUGS (6)
  1. DEXAMETHASONE [Concomitant]
  2. FLUOROURACIL [Concomitant]
  3. OXALIPLATIN [Suspect]
     Indication: METASTASES TO LUNG
     Dosage: 80 MG/M^2 DAY 1, INTRAVENOUS DRIP, 80 MG/M^2 DAY 1, INTRAVENOUS DRIP
     Route: 041
  4. OXALIPLATIN [Suspect]
     Indication: COLON CANCER METASTATIC
     Dosage: 80 MG/M^2 DAY 1, INTRAVENOUS DRIP, 80 MG/M^2 DAY 1, INTRAVENOUS DRIP
     Route: 041
  5. LEUCOVORIN CALCIUM [Concomitant]
  6. GRANISETRON [Concomitant]

REACTIONS (10)
  - CORONARY ARTERY DISEASE [None]
  - HYPOTENSION [None]
  - ELECTROCARDIOGRAM QRS COMPLEX PROLONGED [None]
  - ELECTROCARDIOGRAM T WAVE PEAKED [None]
  - ELECTROCARDIOGRAM ST SEGMENT ELEVATION [None]
  - MENTAL STATUS CHANGES [None]
  - CHEST DISCOMFORT [None]
  - HYPERHIDROSIS [None]
  - PRINZMETAL ANGINA [None]
  - KOUNIS SYNDROME [None]
